FAERS Safety Report 19684427 (Version 1)
Quarter: 2021Q3

REPORT INFORMATION
  Report Type: Report from Study
  Country: AU (occurrence: AU)
  Receive Date: 20210811
  Receipt Date: 20210811
  Transmission Date: 20211014
  Serious: Yes (Hospitalization)
  Sender: FDA-Public Use
  Company Number: NVSC2021AU118424

PATIENT
  Age: 63 Year
  Sex: Female

DRUGS (3)
  1. MAYZENT [Suspect]
     Active Substance: SIPONIMOD
     Dosage: 2 MG, QD
     Route: 048
     Dates: start: 20210510
  2. CANNABIS [Concomitant]
     Active Substance: CANNABIS SATIVA SUBSP. INDICA TOP
     Indication: PRODUCT USED FOR UNKNOWN INDICATION
     Dosage: UNK
     Route: 065
  3. MAYZENT [Suspect]
     Active Substance: SIPONIMOD
     Indication: SECONDARY PROGRESSIVE MULTIPLE SCLEROSIS
     Dosage: 2 MG, QD
     Route: 048
     Dates: start: 202104

REACTIONS (11)
  - Dyskinesia [Recovering/Resolving]
  - Asthenia [Unknown]
  - Head discomfort [Unknown]
  - Dizziness [Recovering/Resolving]
  - Ocular discomfort [Unknown]
  - Malaise [Not Recovered/Not Resolved]
  - Headache [Unknown]
  - Nausea [Recovering/Resolving]
  - Hypertension [Recovering/Resolving]
  - Hot flush [Not Recovered/Not Resolved]
  - Product dose omission issue [Recovering/Resolving]

NARRATIVE: CASE EVENT DATE: 20210507
